FAERS Safety Report 8460885-9 (Version None)
Quarter: 2012Q2

REPORT INFORMATION
  Report Type: 
  Country: None (occurrence: None)
  Receive Date: 20120625
  Receipt Date: 20120612
  Transmission Date: 20120825
  Serious: Yes (Hospitalization)
  Sender: FDA-Public Use
  Company Number: FR-GE HEALTHCARE MEDICAL DIAGNOSTICS-OSCN-NO-1206S-0099

PATIENT
  Sex: Female
  Weight: 58 kg

DRUGS (1)
  1. OMNISCAN [Suspect]
     Indication: MENIERE'S DISEASE
     Route: 042
     Dates: start: 20120530, end: 20120530

REACTIONS (5)
  - LOSS OF CONSCIOUSNESS [None]
  - SALIVARY HYPERSECRETION [None]
  - MYOCLONUS [None]
  - GRAND MAL CONVULSION [None]
  - EYE MOVEMENT DISORDER [None]
